FAERS Safety Report 8881227 (Version 1)
Quarter: 2012Q4

REPORT INFORMATION
  Report Type: 
  Country: CA (occurrence: CA)
  Receive Date: 20121031
  Receipt Date: 20121031
  Transmission Date: 20130627
  Serious: Yes (Hospitalization, Disabling)
  Sender: FDA-Public Use
  Company Number: CA-SANOFI-AVENTIS-2012SA077378

PATIENT
  Age: 67 Year
  Sex: Male
  Weight: 77.9 kg

DRUGS (7)
  1. PLAVIX [Suspect]
     Indication: DRUG USE FOR UNKNOWN INDICATION
     Route: 065
     Dates: start: 20100118
  2. INVESTIGATIONAL DRUG [Suspect]
     Indication: ACUTE CORONARY SYNDROME
     Route: 048
     Dates: start: 20100322
  3. ASAPHEN [Suspect]
     Indication: DRUG USE FOR UNKNOWN INDICATION
     Route: 065
     Dates: start: 20100119
  4. METFORMIN [Concomitant]
     Dates: start: 2003
  5. METOPROLOL [Concomitant]
     Dates: start: 20100218
  6. ATORVASTATIN CALCIUM [Concomitant]
     Dates: start: 20100118
  7. GLYCERYL TRINITRATE [Concomitant]
     Dates: start: 20100117

REACTIONS (3)
  - Fall [Unknown]
  - Rib fracture [Not Recovered/Not Resolved]
  - Eye haemorrhage [Not Recovered/Not Resolved]
